FAERS Safety Report 24843051 (Version 1)
Quarter: 2025Q1

REPORT INFORMATION
  Report Type: Report from Study
  Country: US (occurrence: US)
  Receive Date: 20250115
  Receipt Date: 20250115
  Transmission Date: 20250409
  Serious: No
  Sender: HRA PHARMA
  Company Number: US-ORG100014127-2024000089

PATIENT
  Age: 36 Year
  Sex: Female

DRUGS (11)
  1. LYSODREN [Suspect]
     Active Substance: MITOTANE
     Indication: Adrenal gland cancer
     Dosage: 500 MG; 2 TABLETS TWICE DAILY
     Route: 048
     Dates: start: 20230527
  2. LYSODREN [Suspect]
     Active Substance: MITOTANE
     Indication: Adrenal gland cancer
     Dosage: 500 MG; 3 TABLETS TWICE DAILY
     Route: 048
  3. amlodipine tab 5mg [Concomitant]
     Indication: Product used for unknown indication
     Route: 048
  4. BACLOFEN [Concomitant]
     Active Substance: BACLOFEN
     Indication: Product used for unknown indication
     Route: 048
  5. ENOXAPARIN [Concomitant]
     Active Substance: ENOXAPARIN
     Indication: Product used for unknown indication
     Route: 048
  6. hydrocortison tab 5mg [Concomitant]
     Indication: Product used for unknown indication
     Route: 048
  7. labetalol tab 100mg [Concomitant]
     Indication: Product used for unknown indication
     Route: 048
  8. METFORMIN [Concomitant]
     Active Substance: METFORMIN HYDROCHLORIDE
     Indication: Product used for unknown indication
     Route: 048
  9. ONDANSETRON [Concomitant]
     Active Substance: ONDANSETRON
     Indication: Product used for unknown indication
     Route: 048
  10. prochlorperazine tab 10mg [Concomitant]
     Indication: Product used for unknown indication
     Route: 048
  11. HYDROCO/APAP Tab 5-325 mg [Concomitant]
     Indication: Product used for unknown indication
     Route: 048

REACTIONS (2)
  - Emotional disorder [Not Recovered/Not Resolved]
  - Dizziness [Not Recovered/Not Resolved]

NARRATIVE: CASE EVENT DATE: 20240317
